FAERS Safety Report 12356967 (Version 10)
Quarter: 2018Q2

REPORT INFORMATION
  Report Type: Report from Study
  Country: US (occurrence: US)
  Receive Date: 20160511
  Receipt Date: 20180620
  Transmission Date: 20180711
  Serious: Yes (Hospitalization, Other)
  Sender: FDA-Public Use
  Company Number: US-ACTELION-A-NJ2016-135895

PATIENT
  Age: 84 Year
  Sex: Female
  Weight: 72.56 kg

DRUGS (3)
  1. TRACLEER [Suspect]
     Active Substance: BOSENTAN
     Dosage: 125 MG, BID
     Route: 048
  2. XARELTO [Concomitant]
     Active Substance: RIVAROXABAN
  3. TRACLEER [Suspect]
     Active Substance: BOSENTAN
     Indication: PULMONARY ARTERIAL HYPERTENSION
     Dosage: 125 MG, BID
     Route: 048
     Dates: start: 20101001

REACTIONS (14)
  - Joint dislocation reduction [Unknown]
  - Concomitant disease progression [Unknown]
  - Thrombosis [Unknown]
  - Dementia Alzheimer^s type [Unknown]
  - Joint dislocation [Unknown]
  - Gait inability [Unknown]
  - Device related infection [Unknown]
  - Hip arthroplasty [Unknown]
  - Fall [Unknown]
  - Femur fracture [Unknown]
  - Urinary bladder haemorrhage [Unknown]
  - Urinary tract infection [Unknown]
  - Hospice care [Unknown]
  - Bedridden [Unknown]
